FAERS Safety Report 5731914-8 (Version None)
Quarter: 2008Q2

REPORT INFORMATION
  Report Type: 
  Country: None (occurrence: None)
  Receive Date: 20080508
  Receipt Date: 20080501
  Transmission Date: 20081010
  Serious: Yes (Hospitalization, Other)
  Sender: FDA-Public Use
  Company Number: GB-ABBOTT-08P-167-0446412-00

PATIENT
  Sex: Male

DRUGS (3)
  1. KLACID TABLETS [Suspect]
     Indication: LOWER RESPIRATORY TRACT INFECTION
     Dosage: MOST RECENT COURSE
     Route: 048
     Dates: start: 20051101
  2. KLACID TABLETS [Suspect]
     Dates: start: 20070101
  3. KLACID TABLETS [Suspect]
     Dates: start: 20070110

REACTIONS (3)
  - COUGH [None]
  - DRUG INEFFECTIVE [None]
  - INGUINAL HERNIA [None]
